FAERS Safety Report 14498574 (Version 1)
Quarter: 2018Q1

REPORT INFORMATION
  Report Type: Spontaneous
  Country: US (occurrence: US)
  Receive Date: 20180207
  Receipt Date: 20180207
  Transmission Date: 20180509
  Serious: No
  Sender: FDA-Public Use
  Company Number: US-PFIZER INC-2018051886

PATIENT
  Age: 11 Year
  Sex: Male
  Weight: 35.38 kg

DRUGS (2)
  1. QUILLIVANT XR [Suspect]
     Active Substance: METHYLPHENIDATE HYDROCHLORIDE
     Dosage: 3.5-4 MG DAILY
  2. QUILLIVANT XR [Suspect]
     Active Substance: METHYLPHENIDATE HYDROCHLORIDE
     Indication: DISTURBANCE IN ATTENTION
     Dosage: 6 MG, 1X/DAY
     Route: 048

REACTIONS (2)
  - Disturbance in attention [Unknown]
  - Intentional product use issue [Unknown]
